FAERS Safety Report 8136400-6 (Version None)
Quarter: 2012Q1

REPORT INFORMATION
  Report Type: 
  Country: None (occurrence: None)
  Receive Date: 20120214
  Receipt Date: 20120203
  Transmission Date: 20120608
  Serious: Yes (Hospitalization, Other)
  Sender: FDA-Public Use
  Company Number: US-ELI_LILLY_AND_COMPANY-US201009003127

PATIENT
  Sex: Female

DRUGS (25)
  1. FORTEO [Suspect]
     Dosage: 20 UG, DAILY (1/D)
     Route: 058
  2. AZOPT [Concomitant]
     Dosage: UNK, UNKNOWN
     Route: 065
  3. FORTEO [Suspect]
     Indication: OSTEOPOROSIS
     Dosage: 20 UG, DAILY (1/D)
     Route: 058
     Dates: start: 20100611, end: 20101014
  4. FORTEO [Suspect]
     Dosage: 20 UG, QD
     Route: 058
     Dates: end: 20110318
  5. PREDNISONE TAB [Concomitant]
     Dosage: 9 MG, UNKNOWN
     Route: 065
  6. PREDNISONE TAB [Concomitant]
     Dosage: 40 MG, UNKNOWN
     Route: 065
  7. FOLIC ACID [Concomitant]
     Dosage: UNK, UNKNOWN
     Route: 065
  8. ALBUTEROL [Concomitant]
     Dosage: UNK, EVERY 4 HRS
     Route: 065
     Dates: start: 20100101
  9. FISH OIL [Concomitant]
     Dosage: UNK, UNKNOWN
     Route: 065
  10. CALCIUM                                 /N/A/ [Concomitant]
     Dosage: UNK, UNKNOWN
     Route: 065
  11. PROTONIX [Concomitant]
     Indication: GASTRIC DISORDER
     Dosage: UNK, EACH MORNING
     Route: 065
  12. ASCORBIC ACID [Concomitant]
     Dosage: UNK, UNKNOWN
     Route: 065
  13. IMURAN [Concomitant]
  14. PREDNISONE TAB [Concomitant]
     Dosage: 10 MG, UNKNOWN
     Route: 065
  15. ZITHROMAX [Concomitant]
     Dosage: UNK, UNKNOWN
     Route: 065
     Dates: start: 20100901
  16. PREDNISONE TAB [Concomitant]
     Dosage: 30 MG, UNKNOWN
     Route: 065
     Dates: start: 20100901
  17. FORTEO [Suspect]
     Dosage: 20 UG, QD
     Route: 058
  18. PREDNISONE TAB [Concomitant]
     Dosage: 8 MG, UNKNOWN
     Route: 065
  19. XANAX [Concomitant]
     Dosage: UNK, UNKNOWN
     Route: 065
  20. FORTEO [Suspect]
     Dosage: 20 UG, QD
     Route: 058
     Dates: end: 20110601
  21. FORTEO [Suspect]
     Dosage: 20 UG, QD
     Route: 058
  22. PREDNISONE TAB [Concomitant]
     Dosage: 7 MG, UNKNOWN
     Route: 065
  23. LEXAPRO [Concomitant]
     Dosage: UNK, UNKNOWN
     Route: 065
  24. MIRALAX [Concomitant]
     Dosage: UNK, EACH EVENING
     Route: 065
  25. XALATAN [Concomitant]
     Dosage: UNK, UNKNOWN
     Route: 065

REACTIONS (31)
  - WAGNER'S DISEASE [None]
  - COUGH [None]
  - PAIN IN EXTREMITY [None]
  - SINUSITIS [None]
  - NECK PAIN [None]
  - INJECTION SITE PAIN [None]
  - THROMBOSIS [None]
  - DYSKINESIA [None]
  - PAIN [None]
  - ABNORMAL SENSATION IN EYE [None]
  - PULMONARY EMBOLISM [None]
  - DYSPNOEA [None]
  - THORACIC VERTEBRAL FRACTURE [None]
  - MALAISE [None]
  - WEGENER'S GRANULOMATOSIS [None]
  - FATIGUE [None]
  - NERVOUSNESS [None]
  - INJECTION SITE HAEMORRHAGE [None]
  - ARTHRALGIA [None]
  - PHARYNGITIS [None]
  - MYALGIA [None]
  - BALANCE DISORDER [None]
  - INJECTION SITE RASH [None]
  - FRACTURED SACRUM [None]
  - BACTERIAL INFECTION [None]
  - POST PROCEDURAL HAEMORRHAGE [None]
  - VOMITING [None]
  - MUSCULOSKELETAL PAIN [None]
  - OROPHARYNGEAL PAIN [None]
  - INJECTION SITE ERYTHEMA [None]
  - RASH [None]
